FAERS Safety Report 6901926-7 (Version None)
Quarter: 2010Q3

REPORT INFORMATION
  Report Type: 
  Country: None (occurrence: None)
  Receive Date: 20100802
  Receipt Date: 20100802
  Transmission Date: 20110219
  Serious: Yes (Other)
  Sender: FDA-Public Use
  Company Number: None

PATIENT
  Age: 41 Year
  Sex: Female
  Weight: 63.05 kg

DRUGS (1)
  1. BOTOX [Suspect]

REACTIONS (5)
  - DYSPHAGIA [None]
  - HEADACHE [None]
  - MADAROSIS [None]
  - SWELLING [None]
  - VIITH NERVE PARALYSIS [None]
